FAERS Safety Report 8555596-5 (Version None)
Quarter: 2012Q3

REPORT INFORMATION
  Report Type: 
  Country: None (occurrence: None)
  Receive Date: 20120731
  Receipt Date: 20111026
  Transmission Date: 20120928
  Serious: No
  Sender: FDA-Public Use
  Company Number: US-ASTRAZENECA-2010SE38061

PATIENT
  Age: 14448 Day
  Sex: Male
  Weight: 99.8 kg

DRUGS (11)
  1. SEROQUEL [Suspect]
     Route: 048
  2. SEROQUEL [Suspect]
     Route: 048
     Dates: start: 20050101, end: 20100802
  3. SEROQUEL [Suspect]
     Route: 048
  4. SEROQUEL [Suspect]
     Route: 048
  5. FISH OIL [Concomitant]
  6. VITAMIN B COMPLEX CAP [Concomitant]
  7. SEROQUEL [Suspect]
     Indication: BIPOLAR I DISORDER
     Route: 048
  8. SEROQUEL [Suspect]
     Route: 048
  9. SEROQUEL [Suspect]
     Route: 048
  10. LAMICTAL [Concomitant]
  11. SEROQUEL [Suspect]
     Route: 048
     Dates: start: 20050101, end: 20100802

REACTIONS (5)
  - INSOMNIA [None]
  - DRUG DOSE OMISSION [None]
  - DRUG PRESCRIBING ERROR [None]
  - DRUG INEFFECTIVE [None]
  - DISSOCIATION [None]
